FAERS Safety Report 6369956-4 (Version None)
Quarter: 2009Q3

REPORT INFORMATION
  Report Type: 
  Country: None (occurrence: None)
  Receive Date: 20090923
  Receipt Date: 20070427
  Transmission Date: 20100115
  Serious: No
  Sender: FDA-Public Use
  Company Number: US-ASTRAZENECA-2006UW07832

PATIENT
  Age: 17493 Day
  Sex: Male
  Weight: 114.3 kg

DRUGS (18)
  1. SEROQUEL [Suspect]
     Indication: MENTAL DISORDER
     Dosage: 200 TO 400 MG
     Route: 048
     Dates: start: 20000101
  2. SEROQUEL [Suspect]
     Dosage: STRENGTH: 100 TO 200 MG, DOSE: 300 MG DAILY
     Route: 048
     Dates: start: 20010907
  3. ASPIRIN [Concomitant]
     Dates: start: 20010907
  4. ATENOLOL [Concomitant]
     Dosage: 25 - 100 MG DAILY
     Dates: start: 20010907
  5. RANITIDINE [Concomitant]
     Dates: start: 20010907
  6. ALBUTEROL [Concomitant]
     Dosage: METERED DOSE INHALER (MDI) AS REQUIRED
     Dates: start: 20020612
  7. VICODIN [Concomitant]
     Indication: PAIN
     Dosage: THREE TIMES A DAY AS REQUIRED
     Dates: start: 20040726
  8. ATORVASTATIN [Concomitant]
     Dates: start: 20060602
  9. HYDROCHLOROTHIAZIDE [Concomitant]
     Dates: start: 20060602
  10. ROBITUSSIN-AC [Concomitant]
     Indication: COUGH
     Dosage: 120 MILLILITERS, ONE TO TWO TSP EVERY FOUR HOURS AS REQUIRED
     Dates: start: 20000421
  11. REMERON [Concomitant]
     Dates: start: 20000421
  12. TOPAMAX [Concomitant]
     Dates: start: 20020308
  13. AMBIEN [Concomitant]
     Dates: start: 20021111
  14. DOXEPIN HCL [Concomitant]
     Dates: start: 20050527
  15. CLONAZEPAM [Concomitant]
     Dates: start: 20060110
  16. LUNESTA [Concomitant]
     Dates: start: 20060110
  17. EFFEXOR XR [Concomitant]
     Dates: start: 20040409
  18. TEMAZEPAM [Concomitant]
     Dates: start: 20060918

REACTIONS (5)
  - DIABETES MELLITUS [None]
  - GLUCOSE TOLERANCE IMPAIRED [None]
  - IMPAIRED FASTING GLUCOSE [None]
  - PARAESTHESIA [None]
  - TYPE 2 DIABETES MELLITUS [None]
